FAERS Safety Report 10853158 (Version 1)
Quarter: 2015Q1

REPORT INFORMATION
  Report Type: Spontaneous
  Country: None (occurrence: None)
  Receive Date: 20150218
  Receipt Date: 20150218
  Transmission Date: 20150721
  Serious: Yes (Hospitalization)
  Sender: FDA-Public Use
  Company Number: None

PATIENT
  Age: 80 Year
  Sex: Male

DRUGS (1)
  1. SUTENT [Suspect]
     Active Substance: SUNITINIB MALATE
     Indication: RENAL CANCER
     Dosage: DAILY FOR 28 DAYS ON 14
     Route: 048
     Dates: start: 20141106, end: 20150101

REACTIONS (3)
  - Walking aid user [None]
  - Muscular weakness [None]
  - Back pain [None]

NARRATIVE: CASE EVENT DATE: 20141223
